FAERS Safety Report 25951822 (Version 1)
Quarter: 2025Q4

REPORT INFORMATION
  Report Type: Spontaneous
  Country: EU (occurrence: EU)
  Receive Date: 20251023
  Receipt Date: 20251023
  Transmission Date: 20260118
  Serious: Yes (Other)
  Sender: CSL BEHRING
  Company Number: EU-BEH-2021138756

PATIENT
  Age: 43 Year
  Sex: Male
  Weight: 86 kg

DRUGS (6)
  1. IDELVION [Suspect]
     Active Substance: COAGULATION FACTOR IX RECOMBINANT HUMAN
     Indication: Prophylaxis
     Dosage: 4000 INTERNATIONAL UNIT PER 10-14 DAYS
     Route: 042
     Dates: start: 20210726, end: 20211105
  2. IDELVION [Suspect]
     Active Substance: COAGULATION FACTOR IX RECOMBINANT HUMAN
     Indication: Prophylaxis
     Dosage: 4000 INTERNATIONAL UNIT PER 10-14 DAYS
     Route: 042
     Dates: start: 20210726, end: 20211105
  3. IDELVION [Suspect]
     Active Substance: COAGULATION FACTOR IX RECOMBINANT HUMAN
     Dosage: 4000 INTERNATIONAL UNIT
     Route: 042
     Dates: start: 20211105, end: 20211105
  4. IDELVION [Suspect]
     Active Substance: COAGULATION FACTOR IX RECOMBINANT HUMAN
     Dosage: 4000 INTERNATIONAL UNIT
     Route: 042
     Dates: start: 20211105, end: 20211105
  5. IDELVION [Suspect]
     Active Substance: COAGULATION FACTOR IX RECOMBINANT HUMAN
     Dosage: UNK
     Route: 065
     Dates: start: 202107, end: 202111
  6. IDELVION [Suspect]
     Active Substance: COAGULATION FACTOR IX RECOMBINANT HUMAN
     Dosage: UNK
     Route: 065
     Dates: start: 202107, end: 202111

REACTIONS (6)
  - Drug ineffective [Recovered/Resolved with Sequelae]
  - Haemarthrosis [Unknown]
  - Drug ineffective [Unknown]
  - Haemarthrosis [Recovered/Resolved with Sequelae]
  - Haemarthrosis [Recovered/Resolved with Sequelae]
  - Haemarthrosis [Recovered/Resolved with Sequelae]

NARRATIVE: CASE EVENT DATE: 20210901
